FAERS Safety Report 5103917-8 (Version None)
Quarter: 2006Q3

REPORT INFORMATION
  Report Type: 
  Country: None (occurrence: None)
  Receive Date: 20060913
  Receipt Date: 20060905
  Transmission Date: 20061208
  Serious: Yes (Death, Hospitalization)
  Sender: FDA-Public Use
  Company Number: US-JNJFOC-20060902104

PATIENT
  Age: 46 Year
  Sex: Male

DRUGS (3)
  1. ACETAMINOPHEN [Suspect]
  2. ACETAMINOPHEN [Suspect]
     Indication: SUICIDE ATTEMPT
  3. ETHANOL [Suspect]
     Indication: SUICIDE ATTEMPT
     Dosage: 12 BEERS
     Route: 048

REACTIONS (6)
  - BLOOD BICARBONATE DECREASED [None]
  - BLOOD PH DECREASED [None]
  - COMPLETED SUICIDE [None]
  - HEPATIC FAILURE [None]
  - INTENTIONAL OVERDOSE [None]
  - RESPIRATORY DISTRESS [None]
